APPROVED DRUG PRODUCT: CERADON
Active Ingredient: CEFOTIAM HYDROCHLORIDE
Strength: EQ 1GM BASE/VIAL
Dosage Form/Route: INJECTABLE;INJECTION
Application: N050601 | Product #001
Applicant: TAKEDA CHEMICAL INDUSTRIES LTD
Approved: Dec 30, 1988 | RLD: No | RS: No | Type: DISCN